FAERS Safety Report 5972920-8 (Version None)
Quarter: 2008Q4

REPORT INFORMATION
  Report Type: 
  Country: None (occurrence: None)
  Receive Date: 20081126
  Receipt Date: 20081126
  Transmission Date: 20090506
  Serious: Yes (Other)
  Sender: FDA-Public Use
  Company Number: None

PATIENT
  Sex: Male
  Weight: 113.3993 kg

DRUGS (1)
  1. CIMZIA [Suspect]
     Indication: CROHN'S DISEASE
     Dosage: 400MG WEEKS 0, 2, 4 SQ
     Route: 058
     Dates: start: 20081107, end: 20081121

REACTIONS (6)
  - DIPLOPIA [None]
  - DIZZINESS [None]
  - DYSKINESIA [None]
  - TREMOR [None]
  - VERTIGO [None]
  - VISION BLURRED [None]
